FAERS Safety Report 5872207-8 (Version None)
Quarter: 2008Q3

REPORT INFORMATION
  Report Type: 
  Country: None (occurrence: None)
  Receive Date: 20080902
  Receipt Date: 20080820
  Transmission Date: 20090109
  Serious: Yes (Hospitalization)
  Sender: FDA-Public Use
  Company Number: 2008-182349-NL

PATIENT
  Age: 56 Year
  Sex: Female

DRUGS (11)
  1. DEXAMETHASONE [Suspect]
     Indication: CHEMOTHERAPY
     Dosage: INTRAVENOUS (NOS)
     Route: 042
     Dates: start: 20080509
  2. DEXAMETHASONE [Suspect]
     Indication: DRUG THERAPY
     Dosage: INTRAVENOUS (NOS)
     Route: 042
     Dates: start: 20080509
  3. DEXAMETHASONE [Suspect]
     Indication: CHEMOTHERAPY
     Dosage: INTRAVENOUS (NOS)
     Route: 042
     Dates: start: 20080612
  4. DEXAMETHASONE [Suspect]
     Indication: DRUG THERAPY
     Dosage: INTRAVENOUS (NOS)
     Route: 042
     Dates: start: 20080612
  5. DEXAMETHASONE [Suspect]
     Indication: CHEMOTHERAPY
     Dosage: INTRAVENOUS (NOS)
     Route: 042
     Dates: start: 20080703
  6. DEXAMETHASONE [Suspect]
     Indication: DRUG THERAPY
     Dosage: INTRAVENOUS (NOS)
     Route: 042
     Dates: start: 20080703
  7. DEXAMETHASONE [Suspect]
     Indication: CHEMOTHERAPY
     Dosage: INTRAVENOUS (NOS)
     Route: 042
     Dates: start: 20080820
  8. DEXAMETHASONE [Suspect]
     Indication: DRUG THERAPY
     Dosage: INTRAVENOUS (NOS)
     Route: 042
     Dates: start: 20080820
  9. TAXOL [Concomitant]
  10. CARBOPLATIN [Concomitant]
  11. RANITIDINE [Concomitant]

REACTIONS (1)
  - PARAESTHESIA [None]
